FAERS Safety Report 9380290 (Version 1)
Quarter: 2013Q3

REPORT INFORMATION
  Report Type: Spontaneous
  Country: DE (occurrence: DE)
  Receive Date: 20130702
  Receipt Date: 20130702
  Transmission Date: 20140515
  Serious: Yes (Hospitalization)
  Sender: FDA-Public Use
  Company Number: DE-BANPHARM-20131444

PATIENT
  Age: 66 Year
  Sex: Female

DRUGS (2)
  1. IBUPROFEN UNKNOWN PRODUCT [Suspect]
     Dosage: PRN (~2X/WEEK 1 TAB.),
  2. FLUPIRTINE [Suspect]
     Indication: PAIN
     Dosage: 1 DF, QD,
     Dates: start: 201211, end: 201304

REACTIONS (5)
  - Hepatitis cholestatic [Recovering/Resolving]
  - Weight decreased [Recovering/Resolving]
  - Abdominal pain upper [Recovering/Resolving]
  - Eructation [Recovering/Resolving]
  - Somnolence [Recovering/Resolving]
